FAERS Safety Report 7111618-X (Version None)
Quarter: 2010Q4

REPORT INFORMATION
  Report Type: 
  Country: None (occurrence: None)
  Receive Date: 20101118
  Receipt Date: 20100331
  Transmission Date: 20110411
  Serious: No
  Sender: FDA-Public Use
  Company Number: US-TEVA-227604USA

PATIENT
  Sex: Male

DRUGS (4)
  1. ALBUTEROL SULFATE AUTOHALER [Suspect]
     Dosage: 2 PUFFS Q6HRS
     Route: 055
     Dates: start: 20090101
  2. LOSARTAN POTASSIUM [Concomitant]
  3. AMLODIPINE [Concomitant]
  4. TRIAMCINOLONE [Concomitant]

REACTIONS (1)
  - RASH [None]
